FAERS Safety Report 14648427 (Version 1)
Quarter: 2018Q1

REPORT INFORMATION
  Report Type: Spontaneous
  Country: US (occurrence: US)
  Receive Date: 20180316
  Receipt Date: 20180316
  Transmission Date: 20180509
  Serious: No
  Sender: FDA-Public Use
  Company Number: US-PERRIGO-17US027883

PATIENT
  Age: 54 Year
  Sex: Female

DRUGS (1)
  1. LORATADINE AND PSEUDOEPHEDRINE SULFATE [Suspect]
     Active Substance: LORATADINE\PSEUDOEPHEDRINE SULFATE
     Indication: SEASONAL ALLERGY
     Dosage: 1 TABLET, SINGLE
     Route: 048
     Dates: start: 20170916, end: 20170916

REACTIONS (7)
  - Oedema peripheral [Unknown]
  - Eyelid oedema [Unknown]
  - Pain [Unknown]
  - Fluid retention [Unknown]
  - Swelling [Unknown]
  - Eyelid pain [Unknown]
  - Hypersensitivity [Unknown]

NARRATIVE: CASE EVENT DATE: 20170916
